FAERS Safety Report 8398447-4 (Version None)
Quarter: 2012Q2

REPORT INFORMATION
  Report Type: 
  Country: None (occurrence: None)
  Receive Date: 20120531
  Receipt Date: 20120524
  Transmission Date: 20120825
  Serious: Yes (Hospitalization)
  Sender: FDA-Public Use
  Company Number: US-BAYER-2012-014681

PATIENT
  Age: 29 Year
  Sex: Female
  Weight: 74.83 kg

DRUGS (9)
  1. OXYCODONE HCL AND ACETAMINOPHEN [Concomitant]
     Indication: PAIN
     Dosage: 5 MG/325 MG
  2. PRISTIQ [Concomitant]
     Indication: STRESS
     Dosage: 20 MG, DAILY
  3. ALPRAZOLAM [Concomitant]
     Dosage: 0.25 MG, UNK
  4. OMEPRAZOLE [Concomitant]
     Indication: GASTROOESOPHAGEAL REFLUX DISEASE
     Dosage: 40 MG, DAILY
     Dates: start: 20090701, end: 20091101
  5. DROSPIRENONE AND ETHINYL ESTRADIOL [Suspect]
     Indication: CONTRACEPTION
     Dosage: UNK
     Dates: start: 20090301, end: 20091101
  6. HYDROCODONE BITARTRATE + ACETAMINOPHEN [Concomitant]
     Dosage: 5 MG/500 MG, TID
     Route: 048
  7. XANAX [Concomitant]
     Dosage: UNK
  8. DROSPIRENONE AND ETHINYL ESTRADIOL [Suspect]
     Indication: MENSTRUAL CYCLE MANAGEMENT
  9. PRISTIQ [Concomitant]
     Indication: ANXIETY
     Dosage: 100 MG, UNK
     Dates: start: 20090401, end: 20100101

REACTIONS (7)
  - ABDOMINAL PAIN [None]
  - CHOLECYSTITIS CHRONIC [None]
  - FEAR OF DISEASE [None]
  - CHOLELITHIASIS [None]
  - ANHEDONIA [None]
  - PAIN [None]
  - ANXIETY [None]
